FAERS Safety Report 11875165 (Version 1)
Quarter: 2015Q4

REPORT INFORMATION
  Report Type: Spontaneous
  Country: US (occurrence: None)
  Receive Date: 20151228
  Receipt Date: 20151228
  Transmission Date: 20160305
  Serious: Yes (Hospitalization)
  Sender: FDA-Public Use
  Company Number: None

PATIENT
  Age: 76 Year
  Sex: Male
  Weight: 67.2 kg

DRUGS (1)
  1. FUROSEMIDE. [Suspect]
     Active Substance: FUROSEMIDE
     Indication: CARDIAC FAILURE CONGESTIVE
     Route: 048
     Dates: start: 20150401, end: 20151119

REACTIONS (13)
  - Coagulopathy [None]
  - Blood lactic acid increased [None]
  - Hypotension [None]
  - Fall [None]
  - Hepatotoxicity [None]
  - Blood urea increased [None]
  - Malaise [None]
  - Accidental overdose [None]
  - Ischaemic hepatitis [None]
  - Hypoperfusion [None]
  - Blood creatinine increased [None]
  - Transaminases increased [None]
  - Hepatocellular injury [None]

NARRATIVE: CASE EVENT DATE: 20151119
